FAERS Safety Report 7321341-4 (Version None)
Quarter: 2011Q1

REPORT INFORMATION
  Report Type: 
  Country: None (occurrence: None)
  Receive Date: 20110228
  Receipt Date: 20100304
  Transmission Date: 20110831
  Serious: No
  Sender: FDA-Public Use
  Company Number: US-PFIZER INC-2010009204

PATIENT
  Age: 28 Year
  Sex: Female

DRUGS (2)
  1. KLONOPIN [Suspect]
  2. GEODON [Suspect]
     Indication: BIPOLAR DISORDER
     Dosage: 60 MG, 2X/DAY
     Route: 048
     Dates: start: 20091214

REACTIONS (2)
  - FATIGUE [None]
  - DRUG WITHDRAWAL SYNDROME [None]
